FAERS Safety Report 5361302-8 (Version None)
Quarter: 2007Q2

REPORT INFORMATION
  Report Type: 
  Country: None (occurrence: None)
  Receive Date: 20070612
  Receipt Date: 20070531
  Transmission Date: 20071010
  Serious: Yes (Death)
  Sender: FDA-Public Use
  Company Number: S07-ESP-02501-01

PATIENT
  Age: 88 Year
  Sex: Male
  Weight: 66 kg

DRUGS (7)
  1. CITALOPRAM HYDROBROMIDE [Suspect]
     Indication: DYSTHYMIC DISORDER
     Dosage: 10 MG QD PO
     Route: 048
     Dates: start: 20070302, end: 20070305
  2. CITALOPRAM HYDROBROMIDE [Suspect]
     Indication: DYSTHYMIC DISORDER
     Dosage: 20 MG QD PO
     Route: 048
     Dates: start: 20070306, end: 20070314
  3. SPIRIVA [Suspect]
     Indication: OBSTRUCTIVE AIRWAYS DISORDER
     Dosage: 18 MCG QD IH
     Route: 055
     Dates: start: 20070301, end: 20070314
  4. LORAZEPAM [Concomitant]
  5. SEREVENT [Concomitant]
  6. OMEPRAZOLE [Concomitant]
  7. DACORTIN (PREDNISONE) [Concomitant]

REACTIONS (1)
  - COMPLETED SUICIDE [None]
